FAERS Safety Report 8200462-8 (Version None)
Quarter: 2012Q1

REPORT INFORMATION
  Report Type: 
  Country: None (occurrence: None)
  Receive Date: 20120312
  Receipt Date: 20120302
  Transmission Date: 20120608
  Serious: Yes (Hospitalization, Other)
  Sender: FDA-Public Use
  Company Number: FR-BAYER-2012-018072

PATIENT
  Age: 51 Year
  Sex: Female

DRUGS (1)
  1. MIRENA [Suspect]
     Dosage: 20 ?G, CONT
     Route: 015
     Dates: start: 20050501, end: 20110926

REACTIONS (7)
  - RENAL INFARCT [None]
  - PARADOXICAL EMBOLISM [None]
  - SPLENIC INFARCTION [None]
  - EMBOLIC STROKE [None]
  - PULMONARY EMBOLISM [None]
  - DEEP VEIN THROMBOSIS [None]
  - ATRIAL SEPTAL DEFECT [None]
